FAERS Safety Report 5159420-2 (Version None)
Quarter: 2006Q4

REPORT INFORMATION
  Report Type: 
  Country: None (occurrence: None)
  Receive Date: 20061122
  Receipt Date: 20061122
  Transmission Date: 20070319
  Serious: Yes (Death)
  Sender: FDA-Public Use
  Company Number: None

PATIENT
  Age: 35 Year
  Sex: Female
  Weight: 65.7716 kg

DRUGS (2)
  1. HUMIRA [Suspect]
     Indication: RHEUMATOID ARTHRITIS
     Dosage: 40 MG/0.8 ML SYRINGE EVERY TWO WEEKS OTHER
     Dates: start: 20050509, end: 20050620
  2. BEXTRA [Suspect]
     Dosage: TABLETS 20 MG TWICE DAILY PO
     Route: 048

REACTIONS (5)
  - CONTUSION [None]
  - DRUG HYPERSENSITIVITY [None]
  - INJECTION SITE SWELLING [None]
  - LEUKAEMIA [None]
  - PAIN [None]
